FAERS Safety Report 7356668-3 (Version None)
Quarter: 2011Q1

REPORT INFORMATION
  Report Type: 
  Country: None (occurrence: None)
  Receive Date: 20110316
  Receipt Date: 20110310
  Transmission Date: 20110831
  Serious: Yes (Death, Hospitalization)
  Sender: FDA-Public Use
  Company Number: GXKR2010GB11779

PATIENT
  Age: 63 Year
  Sex: Female
  Weight: 75 kg

DRUGS (14)
  1. ARAVA [Suspect]
     Indication: RHEUMATOID ARTHRITIS
     Dosage: 20 MG, QD
     Dates: start: 20050101, end: 20101001
  2. COLOMYCIN [Concomitant]
     Dates: start: 20090401
  3. LEVOTHYROXINE SODIUM [Concomitant]
  4. ETORICOXIB [Concomitant]
     Indication: RHEUMATOID ARTHRITIS
     Dosage: 90 MG, 1 DF FOR EVERY 2 DAYS
     Route: 048
     Dates: start: 20070101
  5. LANSOPRAZOLE [Concomitant]
     Indication: GASTROOESOPHAGEAL REFLUX DISEASE
     Dosage: 30 MG, 1 DF EVERY 2 DAYS
     Route: 048
     Dates: start: 20100401
  6. WARFARIN [Concomitant]
     Indication: PULMONARY EMBOLISM
     Dates: start: 20100401
  7. SALAZOPYRIN [Concomitant]
     Indication: RHEUMATOID ARTHRITIS
     Dosage: 2 G, QD
     Route: 048
     Dates: start: 20050101
  8. ALENDRONIC ACID [Concomitant]
     Indication: OSTEOPENIA
     Dosage: 70 MG, QW
     Dates: start: 20070101
  9. CORTICOSTEROIDS [Concomitant]
     Indication: RHEUMATOID ARTHRITIS
  10. METHOTREXATE [Suspect]
     Indication: RHEUMATOID ARTHRITIS
     Dosage: 15 G, QW
     Route: 048
     Dates: start: 20050101
  11. ARAVA [Suspect]
     Dosage: 20 MG, Q48H
  12. CALCIUM [Concomitant]
  13. TIOTROPIUM BROMIDE [Concomitant]
     Dates: start: 20050101
  14. SULPHASALAZINE [Concomitant]
     Indication: RHEUMATOID ARTHRITIS

REACTIONS (15)
  - DYSPNOEA [None]
  - INTERSTITIAL LUNG DISEASE [None]
  - ABDOMINAL DISCOMFORT [None]
  - HYPERTENSION [None]
  - HYPOXIA [None]
  - ANAPHYLACTIC REACTION [None]
  - LIMB DISCOMFORT [None]
  - PLEURAL EFFUSION [None]
  - MYCOBACTERIAL INFECTION [None]
  - PULMONARY FIBROSIS [None]
  - BRONCHIECTASIS [None]
  - PULMONARY EMBOLISM [None]
  - FUNGAL INFECTION [None]
  - HISTAMINE LEVEL INCREASED [None]
  - ACIDOSIS [None]
